FAERS Safety Report 5120482-X (Version None)
Quarter: 2006Q4

REPORT INFORMATION
  Report Type: 
  Country: None (occurrence: None)
  Receive Date: 20061004
  Receipt Date: 20060907
  Transmission Date: 20070319
  Serious: Yes (Death)
  Sender: FDA-Public Use
  Company Number: ZA-ROCHE-463190

PATIENT
  Age: 65 Year
  Sex: Female
  Weight: 62 kg

DRUGS (3)
  1. XELODA [Suspect]
     Indication: COLON CANCER STAGE IV
     Route: 048
  2. XELODA [Suspect]
     Route: 048
     Dates: start: 20060311, end: 20060319
  3. OXALIPLATIN [Concomitant]
     Indication: COLON CANCER STAGE IV
     Route: 042
     Dates: start: 20060310

REACTIONS (4)
  - DIARRHOEA [None]
  - DRUG TOXICITY [None]
  - MUCOSAL INFLAMMATION [None]
  - NEUTROPENIA [None]
